FAERS Safety Report 9857815 (Version 1)
Quarter: 2014Q1

REPORT INFORMATION
  Report Type: Spontaneous
  Country: US (occurrence: US)
  Receive Date: 20140131
  Receipt Date: 20140131
  Transmission Date: 20141002
  Serious: Yes (Hospitalization)
  Sender: FDA-Public Use
  Company Number: US-BRISTOL-MYERS SQUIBB COMPANY-20072526

PATIENT
  Age: 58 Year
  Sex: Female
  Weight: 103.4 kg

DRUGS (9)
  1. ABATACEPT SUBQ INJECTION 125MG/ML [Suspect]
     Indication: RHEUMATOID ARTHRITIS
     Route: 058
  2. ATENOLOL [Suspect]
  3. HUMALOG [Suspect]
     Dosage: 11 DF : 1-5 UNITS
  4. LANTUS [Suspect]
     Indication: DIABETES MELLITUS
     Dosage: 11 DF : 50 UNITS
  5. MICARDIS [Concomitant]
     Indication: BLOOD PRESSURE
  6. SYNTHROID [Concomitant]
     Indication: THYROID DISORDER
  7. NORVASC [Concomitant]
  8. PRAVASTATIN SODIUM [Concomitant]
  9. HYDROCORTISONE [Concomitant]
     Dosage: 11 TAB

REACTIONS (7)
  - Blood glucose decreased [Unknown]
  - Heart rate decreased [Unknown]
  - Hypotension [Unknown]
  - Product quality issue [Unknown]
  - Visual impairment [Unknown]
  - Nasopharyngitis [Unknown]
  - Drug dose omission [Unknown]
